FAERS Safety Report 25832025 (Version 1)
Quarter: 2025Q3

REPORT INFORMATION
  Report Type: Spontaneous
  Country: US (occurrence: US)
  Receive Date: 20250922
  Receipt Date: 20250922
  Transmission Date: 20251021
  Serious: No
  Sender: UNIQUE PHARMACEUTICALS
  Company Number: US-UniquePharma-US-2025UPLSPO00102

PATIENT

DRUGS (4)
  1. CARBAMAZEPINE [Suspect]
     Active Substance: CARBAMAZEPINE
     Indication: Pain
     Route: 065
  2. GABAPENTIN\METHYLCOBALAMIN [Suspect]
     Active Substance: GABAPENTIN\METHYLCOBALAMIN
     Indication: Pain
     Route: 065
  3. ULTRACET [Suspect]
     Active Substance: ACETAMINOPHEN\TRAMADOL HYDROCHLORIDE
     Indication: Pain
     Route: 065
  4. PIRACETAM [Suspect]
     Active Substance: PIRACETAM
     Indication: Pain
     Route: 065

REACTIONS (1)
  - Drug ineffective for unapproved indication [Unknown]
